FAERS Safety Report 6527826-2 (Version None)
Quarter: 2010Q1

REPORT INFORMATION
  Report Type: 
  Country: None (occurrence: None)
  Receive Date: 20100106
  Receipt Date: 20091229
  Transmission Date: 20100710
  Serious: Yes (Other)
  Sender: FDA-Public Use
  Company Number: US-JNJFOC-20091207813

PATIENT
  Age: 75 Year
  Sex: Female

DRUGS (11)
  1. REMICADE [Suspect]
     Indication: RHEUMATOID ARTHRITIS
     Route: 042
  2. LEVOTHYROXINE SODIUM [Concomitant]
  3. MONOPRIL [Concomitant]
  4. ATENOLOL [Concomitant]
  5. FOSAMAX [Concomitant]
  6. SIMVASTATIN [Concomitant]
  7. SULFASALAZINE [Concomitant]
  8. CALTRATE [Concomitant]
  9. VITAMIN D [Concomitant]
  10. HYDROCHLOROTHIAZIDE [Concomitant]
  11. TYLENOL (CAPLET) [Concomitant]

REACTIONS (1)
  - BREAST CANCER [None]
